FAERS Safety Report 7928158-8 (Version None)
Quarter: 2011Q4

REPORT INFORMATION
  Report Type: 
  Country: None (occurrence: None)
  Receive Date: 20111118
  Receipt Date: 20111115
  Transmission Date: 20120403
  Serious: Yes (Death, Hospitalization, Other)
  Sender: FDA-Public Use
  Company Number: IE-ELI_LILLY_AND_COMPANY-IE201110001186

PATIENT
  Sex: Female
  Weight: 62.4 kg

DRUGS (20)
  1. ALIMTA [Suspect]
     Dosage: UNK, UNKNOWN
     Dates: start: 20110407, end: 20110407
  2. VANCOMYCIN [Concomitant]
     Dosage: 125 DF, QID
     Dates: end: 20110418
  3. VITAMIN B-12 [Concomitant]
     Dosage: 1 MG, TWICE WEEKLY
     Route: 030
     Dates: start: 20110330
  4. OMEPRAZOLE [Concomitant]
     Dosage: 20 MG, UNKNOWN
  5. GENTAMICIN [Concomitant]
     Dosage: 80 MG, QD
  6. ESOMEPRAZOLE [Concomitant]
     Dosage: UNK, UNKNOWN
  7. ERYTHROMYCIN [Concomitant]
     Dosage: 250 MG, UNKNOWN
  8. ALIMTA [Suspect]
     Dosage: 850 MG, CYCLE EVERY 21 DAYS
     Route: 042
     Dates: start: 20110407, end: 20110407
  9. CARBOPLATIN [Concomitant]
  10. TEMISARTAN [Concomitant]
     Dosage: UNK, UNKNOWN
  11. LERCANIDIPINE [Concomitant]
     Dosage: 20 MG, UNKNOWN
  12. PREGABALIN [Concomitant]
     Dosage: 25 MG, BID
  13. METRONIDAZOLE [Concomitant]
     Dosage: 500 MG, TID
  14. ALIMTA [Suspect]
     Dosage: 850 MG, CYCLE EVERY 21 DAYS
     Route: 042
     Dates: start: 20110407, end: 20110407
  15. MORPHINE [Concomitant]
     Dosage: 100 MG, BID
  16. VITAMIN K TAB [Concomitant]
     Dosage: 10 MG, TWICE WEEKLY
     Route: 042
  17. PIPERACILLIN AND TAZOBACTAM [Concomitant]
     Dosage: 4.5 MG, BID
  18. ALIMTA [Suspect]
     Indication: NON-SMALL CELL LUNG CANCER
     Dosage: 850 MG, CYCLE EVERY 21 DAYS
     Route: 042
     Dates: start: 20110407, end: 20110407
  19. FOLIC ACID [Concomitant]
     Dosage: 0.4 MG, UNKNOWN
  20. FOLIC ACID [Concomitant]
     Dosage: 20 MG, QID
     Dates: start: 20110402

REACTIONS (3)
  - CLOSTRIDIAL INFECTION [None]
  - NEUTROPENIC SEPSIS [None]
  - NEOPLASM PROGRESSION [None]
